FAERS Safety Report 7316112-9 (Version None)
Quarter: 2011Q1

REPORT INFORMATION
  Report Type: 
  Country: None (occurrence: None)
  Receive Date: 20110225
  Receipt Date: 20110222
  Transmission Date: 20110831
  Serious: Yes (Hospitalization, Disabling)
  Sender: FDA-Public Use
  Company Number: GB-PFIZER INC-2011039045

PATIENT
  Age: 30 Year
  Sex: Male
  Weight: 72 kg

DRUGS (4)
  1. DIAZEPAM [Concomitant]
     Indication: PAIN
  2. LYRICA [Suspect]
     Indication: NEURALGIA
     Dosage: 50 MG, 3X/DAY
     Dates: start: 20110130, end: 20110131
  3. TRAMADOL [Concomitant]
     Dosage: 250 MG, 1X/DAY
     Dates: start: 20100601
  4. DIAZEPAM [Concomitant]
     Indication: PAIN IN EXTREMITY
     Dosage: 5 MG, 1X/DAY
     Dates: start: 20100601

REACTIONS (5)
  - MOTOR DYSFUNCTION [None]
  - DYSARTHRIA [None]
  - APHASIA [None]
  - SENSORY LOSS [None]
  - DYSPHEMIA [None]
